FAERS Safety Report 25369748 (Version 1)
Quarter: 2025Q2

REPORT INFORMATION
  Report Type: Spontaneous
  Country: US (occurrence: US)
  Receive Date: 20250528
  Receipt Date: 20250528
  Transmission Date: 20250716
  Serious: Yes (Other)
  Sender: MERCK SHARP & DOHME LLC
  Company Number: US-009507513-2288342

PATIENT
  Age: 68 Year
  Sex: Female

DRUGS (1)
  1. DIFICID [Suspect]
     Active Substance: FIDAXOMICIN
     Dosage: 200 MG/ TWICE A DAY FOR 10 DAYS
     Route: 048
     Dates: start: 20250501, end: 20250510

REACTIONS (4)
  - Clostridium difficile infection [Not Recovered/Not Resolved]
  - Product availability issue [Unknown]
  - Feeling abnormal [Not Recovered/Not Resolved]
  - Drug ineffective [Not Recovered/Not Resolved]

NARRATIVE: CASE EVENT DATE: 20250501
